FAERS Safety Report 25185598 (Version 1)
Quarter: 2025Q2

REPORT INFORMATION
  Report Type: Spontaneous
  Country: US (occurrence: US)
  Receive Date: 20250410
  Receipt Date: 20250410
  Transmission Date: 20250716
  Serious: No
  Sender: HISAMITSU PHARM
  Company Number: US-HISAMITSU-2024-US-067708

PATIENT
  Age: 83 Year
  Sex: Female
  Weight: 58.97 kg

DRUGS (3)
  1. SULFASALAZINE [Concomitant]
     Active Substance: SULFASALAZINE
  2. CALCIUM [Concomitant]
     Active Substance: CALCIUM
  3. SALONPAS PAIN RELIEF [Suspect]
     Active Substance: MENTHOL\METHYL SALICYLATE
     Indication: Back pain
     Route: 061
     Dates: start: 20241218, end: 20241218

REACTIONS (1)
  - Application site pain [Recovered/Resolved]

NARRATIVE: CASE EVENT DATE: 20241218
